FAERS Safety Report 9580816 (Version 4)
Quarter: 2014Q3

REPORT INFORMATION
  Report Type: Spontaneous
  Country: FR (occurrence: FR)
  Receive Date: 20131002
  Receipt Date: 20140701
  Transmission Date: 20150326
  Serious: Yes (Hospitalization)
  Sender: FDA-Public Use
  Company Number: FR-PFIZER INC-2013277951

PATIENT
  Age: 61 Year
  Sex: Male
  Weight: 35 kg

DRUGS (14)
  1. NICOBION [Suspect]
     Active Substance: NIACINAMIDE
     Indication: PRODUCT USED FOR UNKNOWN INDICATION
     Dosage: UNK
     Route: 048
  2. SPIRIVA [Concomitant]
     Active Substance: TIOTROPIUM BROMIDE MONOHYDRATE
     Dosage: UNK
  3. LYRICA [Suspect]
     Active Substance: PREGABALIN
     Dosage: UNK
     Route: 048
  4. VITAMIN B 1-6-12 [Suspect]
     Active Substance: CYANOCOBALAMIN\PYRIDOXINE\THIAMINE
     Indication: PRODUCT USED FOR UNKNOWN INDICATION
     Dosage: UNK
     Route: 048
  5. SORIATANE [Suspect]
     Active Substance: ACITRETIN
     Dosage: INCREASED TO 20 MG DAILY
     Route: 048
     Dates: start: 20130628, end: 20130903
  6. SORIATANE [Suspect]
     Active Substance: ACITRETIN
     Dosage: DECREASED TO 10 MG DAILY
     Route: 048
     Dates: start: 20130911
  7. ORACILLINE [Suspect]
     Active Substance: PENICILLIN V
     Indication: PRODUCT USED FOR UNKNOWN INDICATION
     Dosage: UNK
     Route: 048
     Dates: start: 201304
  8. INIPOMP [Suspect]
     Active Substance: PANTOPRAZOLE SODIUM
     Dosage: UNK
     Route: 048
  9. SORIATANE [Suspect]
     Active Substance: ACITRETIN
     Indication: PUSTULAR PSORIASIS
     Dosage: UNK
     Route: 048
     Dates: start: 201304
  10. SORIATANE [Suspect]
     Active Substance: ACITRETIN
     Dosage: INCREASED TO 25 MG DAILY
  11. SERETIDE [Concomitant]
     Active Substance: FLUTICASONE FUROATE\SALMETEROL XINAFOATE
     Dosage: UNK
  12. FRESUBIN [Concomitant]
     Active Substance: AMINO ACIDS\DEXTROSE\ELECTROLYTES NOS\SOYBEAN OIL\VITAMINS
     Dosage: UNK
  13. SORIATANE [Suspect]
     Active Substance: ACITRETIN
     Dosage: 20 MG, DAILY
     Route: 048
     Dates: start: 20130907, end: 20130910
  14. SORIATANE [Suspect]
     Active Substance: ACITRETIN
     Dosage: 20 MG, DAILY
     Route: 048

REACTIONS (2)
  - Hypercalcaemia [Recovered/Resolved]
  - Weight increased [Recovered/Resolved]

NARRATIVE: CASE EVENT DATE: 20130903
